FAERS Safety Report 19361874 (Version 1)
Quarter: 2021Q2

REPORT INFORMATION
  Report Type: Report from Study
  Country: FR (occurrence: FR)
  Receive Date: 20210601
  Receipt Date: 20210601
  Transmission Date: 20210717
  Serious: Yes (Death)
  Sender: FDA-Public Use
  Company Number: FR-PFIZER INC-2021619187

PATIENT
  Age: 56 Year
  Sex: Female

DRUGS (15)
  1. METHOTREXATE SODIUM. [Suspect]
     Active Substance: METHOTREXATE SODIUM
     Indication: BURKITT^S LEUKAEMIA
     Dosage: 3 G/M2/DAY ON DAY 1, CONSECUTIVE COURSE, COPADM 1
  2. CYTARABINE. [Suspect]
     Active Substance: CYTARABINE
     Indication: BURKITT^S LEUKAEMIA
     Dosage: 100 MG/M2/DAYFROM DAY 1 TO DAY 5 (24?H INFUSION), CONSOLIDATION PHASE
  3. METHOTREXATE SODIUM. [Suspect]
     Active Substance: METHOTREXATE SODIUM
     Dosage: 3 G/M2/DAY ON DAY 1, CONSOLIDATION PHASE
  4. CYCLOPHOSPHAMIDE. [Suspect]
     Active Substance: CYCLOPHOSPHAMIDE
     Dosage: 1000 MG/M2/DAY FROM DAY 2 TO DAY 4, CONSECUTIVE COURSE, COPADM 2
  5. DOXORUBICIN HCL [Suspect]
     Active Substance: DOXORUBICIN HYDROCHLORIDE
     Dosage: 60 MG/M2/DAY ON DAY 2, MAINTENANCE
  6. VINCRISTINE SULFATE. [Suspect]
     Active Substance: VINCRISTINE SULFATE
     Dosage: 2 MG/DAY ON DAY 1, CONSECUTIVE COURSE, COPADM 1
  7. VINCRISTINE SULFATE. [Suspect]
     Active Substance: VINCRISTINE SULFATE
     Indication: BURKITT^S LEUKAEMIA
     Dosage: 2 MG/DAY ON DAY 1, CYTOREDUCTIVE PHASE
  8. VINCRISTINE SULFATE. [Suspect]
     Active Substance: VINCRISTINE SULFATE
     Dosage: 2 MG/DAY ON DAY 1 AND DAY 6, CONSECUTIVE COURSE, COPADM 2
  9. CYCLOPHOSPHAMIDE. [Suspect]
     Active Substance: CYCLOPHOSPHAMIDE
     Dosage: 500 MG/M2/DAY ON DAY 1 AND DAY 2, MAINTENANCE
  10. CYCLOPHOSPHAMIDE. [Suspect]
     Active Substance: CYCLOPHOSPHAMIDE
     Dosage: 500 MG/M2/DAY FROM DAY 2 TO DAY 4, CONSECUTIVE COURSE, COPADM 1
  11. PREDNISONE. [Suspect]
     Active Substance: PREDNISONE
     Dosage: 60 MG/M2/DAY FROM DAY 1 TO DAY 7, CONSECUTIVE COURSE, COPADM 1
  12. VINCRISTINE SULFATE. [Suspect]
     Active Substance: VINCRISTINE SULFATE
     Dosage: 2 MG/DAY ON DAY 1, MAINTENANCE
  13. CYCLOPHOSPHAMIDE. [Suspect]
     Active Substance: CYCLOPHOSPHAMIDE
     Indication: BURKITT^S LEUKAEMIA
     Dosage: 300 MG/M2/DAY ON DAY 1, CYTOREDUCTIVE PHASE
  14. DOXORUBICIN HCL [Suspect]
     Active Substance: DOXORUBICIN HYDROCHLORIDE
     Indication: BURKITT^S LEUKAEMIA
     Dosage: 60 MG/M2/DAY ON DAY 2, CONSECUTIVE COURSE, COPADM 1
  15. PREDNISONE. [Suspect]
     Active Substance: PREDNISONE
     Indication: BURKITT^S LEUKAEMIA
     Dosage: 60 MG/M2/DAY FROM DAY 1 TO DAY 7, CYTOREDUCTIVE PHASE

REACTIONS (1)
  - Sepsis [Fatal]
